FAERS Safety Report 6554353-9 (Version None)
Quarter: 2010Q1

REPORT INFORMATION
  Report Type: 
  Country: None (occurrence: None)
  Receive Date: 20100127
  Receipt Date: 20100125
  Transmission Date: 20100710
  Serious: Yes (Life-Threatening, Hospitalization, Disabling, Other)
  Sender: FDA-Public Use
  Company Number: A0841513A

PATIENT
  Age: 68 Year
  Sex: Female

DRUGS (4)
  1. TYKERB [Suspect]
     Dosage: 1000MGD PER DAY
     Route: 048
     Dates: end: 20100118
  2. MULTI-VITAMIN [Concomitant]
  3. METOPROLOL [Concomitant]
     Dosage: 25MG PER DAY
  4. VITAMIN D [Concomitant]

REACTIONS (1)
  - DISEASE PROGRESSION [None]
